FAERS Safety Report 5092662-3 (Version None)
Quarter: 2006Q3

REPORT INFORMATION
  Report Type: 
  Country: None (occurrence: None)
  Receive Date: 20060830
  Receipt Date: 20060823
  Transmission Date: 20061208
  Serious: Yes (Hospitalization)
  Sender: FDA-Public Use
  Company Number: ZA-AVENTIS-200618837GDDC

PATIENT

DRUGS (3)
  1. KETEK [Suspect]
     Indication: BRONCHITIS
     Route: 048
  2. ATACAND HCT [Concomitant]
     Indication: HYPERTENSION
     Dosage: DOSE: UNK
     Route: 048
  3. CRESTOR [Concomitant]
     Route: 048

REACTIONS (1)
  - RENAL FAILURE [None]
